FAERS Safety Report 7681369-1 (Version None)
Quarter: 2011Q3

REPORT INFORMATION
  Report Type: 
  Country: None (occurrence: None)
  Receive Date: 20110812
  Receipt Date: 20110729
  Transmission Date: 20111222
  Serious: Yes (Hospitalization)
  Sender: FDA-Public Use
  Company Number: PHHY2011JP69800

PATIENT
  Age: 73 Year
  Sex: Female

DRUGS (3)
  1. ENTERONON R [Concomitant]
     Route: 048
  2. MARZULENE [Concomitant]
     Route: 048
  3. EXFORGE [Suspect]
     Indication: HYPERTENSION
     Dosage: 1 DF, DAILY
     Route: 048
     Dates: start: 20110423

REACTIONS (2)
  - HENOCH-SCHONLEIN PURPURA [None]
  - HEPATITIS ACUTE [None]
